FAERS Safety Report 22177713 (Version 1)
Quarter: 2023Q2

REPORT INFORMATION
  Report Type: Spontaneous
  Country: US (occurrence: US)
  Receive Date: 20230405
  Receipt Date: 20230405
  Transmission Date: 20230722
  Serious: Yes (Hospitalization)
  Sender: FDA-Public Use
  Company Number: US-Gedeon Richter Plc.-2023_GR_002836

PATIENT
  Sex: Female

DRUGS (6)
  1. CARIPRAZINE HYDROCHLORIDE [Suspect]
     Active Substance: CARIPRAZINE HYDROCHLORIDE
     Indication: Suicide attempt
     Dosage: 20 OF HER 3 MG CARIPRAZINE TABLETS
  2. PALIPERIDONE [Suspect]
     Active Substance: PALIPERIDONE
     Indication: Suicide attempt
     Dosage: 7 OF HER 6 MG EXTENDED-RELEASE PALIPERIDONE TABLETS
  3. MIRTAZAPINE [Suspect]
     Active Substance: MIRTAZAPINE
     Indication: Suicide attempt
     Dosage: 7 OF HER 15 MG MIRTAZAPINE TABLETS
  4. SUMATRIPTAN [Suspect]
     Active Substance: SUMATRIPTAN
     Indication: Suicide attempt
     Dosage: 2 OF HER 100 MG SUMATRIPTAN TABLETS
  5. TOPIRAMATE [Suspect]
     Active Substance: TOPIRAMATE
     Indication: Suicide attempt
     Dosage: 7 OF HER 50 MG TOPIRAMATE TABLETS
  6. NAPROXEN [Suspect]
     Active Substance: NAPROXEN
     Indication: Suicide attempt
     Dosage: 2 OF HER 220 MG NAPROXEN TABLETS

REACTIONS (3)
  - Atrioventricular block first degree [Recovered/Resolved]
  - Intentional overdose [Unknown]
  - Sinus tachycardia [Recovered/Resolved]
